FAERS Safety Report 15347702 (Version 1)
Quarter: 2018Q4

REPORT INFORMATION
  Report Type: Spontaneous
  Country: US (occurrence: US)
  Receive Date: 20180904
  Receipt Date: 20180904
  Transmission Date: 20190204
  Serious: No
  Sender: FDA-Public Use
  Company Number: US-TEVA-2018-US-950175

PATIENT
  Age: 66 Year
  Sex: Male

DRUGS (1)
  1. AMLODIPINE W/BENAZEPRIL TEVA [Suspect]
     Active Substance: AMLODIPINE BESYLATE\BENAZEPRIL HYDROCHLORIDE
     Dosage: 1DF=AMLODIPINE 5MG/BENAZEPRIL HYDROCHLORIDE 20MG

REACTIONS (5)
  - Dizziness [Unknown]
  - Nervousness [Unknown]
  - Heart rate increased [Unknown]
  - Feeling abnormal [Unknown]
  - Headache [Unknown]
